FAERS Safety Report 6688982-9 (Version None)
Quarter: 2010Q2

REPORT INFORMATION
  Report Type: 
  Country: None (occurrence: None)
  Receive Date: 20100420
  Receipt Date: 20100408
  Transmission Date: 20101027
  Serious: Yes (Other)
  Sender: FDA-Public Use
  Company Number: PHHY2009CA46396

PATIENT
  Sex: Male

DRUGS (1)
  1. ZOMETA [Suspect]
     Indication: PROSTATE CANCER
     Dosage: 3.5MG EVERY 12 WEEKS
     Route: 042
     Dates: start: 20070714

REACTIONS (2)
  - BLOOD TESTOSTERONE DECREASED [None]
  - PROSTATIC SPECIFIC ANTIGEN INCREASED [None]
